FAERS Safety Report 19951967 (Version 1)
Quarter: 2021Q4

REPORT INFORMATION
  Report Type: Spontaneous
  Country: IT (occurrence: IT)
  Receive Date: 20211014
  Receipt Date: 20211014
  Transmission Date: 20220303
  Serious: Yes (Hospitalization, Other)
  Sender: FDA-Public Use
  Company Number: IT-JNJFOC-A-CH2020-203196

PATIENT
  Age: 61 Year
  Sex: Male

DRUGS (2)
  1. TRACLEER [Suspect]
     Active Substance: BOSENTAN
     Indication: Pulmonary hypertension
     Dosage: UNK
     Route: 048
     Dates: start: 2013
  2. SILDENAFIL [Concomitant]
     Active Substance: SILDENAFIL
     Indication: Pulmonary hypertension
     Dosage: UNK
     Dates: start: 2015

REACTIONS (19)
  - Lung transplant [Unknown]
  - Cardiac arrest [Unknown]
  - Pulmonary embolism [Unknown]
  - Compartment syndrome [Unknown]
  - Fasciectomy [Unknown]
  - Cor pulmonale chronic [Unknown]
  - Pneumothorax [Unknown]
  - Oxygen saturation decreased [Unknown]
  - Right ventricular dilatation [Unknown]
  - Pulmonary hypertension [Unknown]
  - Condition aggravated [Unknown]
  - Dyspnoea [Unknown]
  - Asthenia [Unknown]
  - Vascular resistance pulmonary increased [Unknown]
  - Atrial fibrillation [Unknown]
  - Drainage [Unknown]
  - Muscle atrophy [Unknown]
  - Drug intolerance [Unknown]
  - Off label use [Unknown]

NARRATIVE: CASE EVENT DATE: 20150101
